FAERS Safety Report 13254371 (Version 1)
Quarter: 2017Q1

REPORT INFORMATION
  Report Type: Spontaneous
  Country: JP (occurrence: JP)
  Receive Date: 20170221
  Receipt Date: 20170221
  Transmission Date: 20170428
  Serious: Yes (Death, Other)
  Sender: FDA-Public Use
  Company Number: JP-ACCORD-048455

PATIENT
  Age: 49 Year
  Sex: Female
  Weight: 43.7 kg

DRUGS (2)
  1. TS-1 [Suspect]
     Active Substance: GIMERACIL\OTERACIL\TEGAFUR
     Indication: METASTATIC GASTRIC CANCER
     Dosage: DAY 1 TO 14 Q3 WEEKS
     Route: 048
     Dates: start: 201508
  2. DOCETAXEL. [Suspect]
     Active Substance: DOCETAXEL
     Indication: METASTATIC GASTRIC CANCER
     Dosage: DAY 1 Q3 WEEKS
     Route: 042
     Dates: start: 201508

REACTIONS (5)
  - Malignant neoplasm progression [None]
  - Leukopenia [Unknown]
  - Diarrhoea [Unknown]
  - Metastatic gastric cancer [None]
  - Hydronephrosis [Unknown]
